FAERS Safety Report 15940126 (Version 2)
Quarter: 2019Q3

REPORT INFORMATION
  Report Type: Report from Study
  Country: CA (occurrence: CA)
  Receive Date: 20190208
  Receipt Date: 20190726
  Transmission Date: 20191004
  Serious: Yes (Other)
  Sender: FDA-Public Use
  Company Number: CA-ASTRAZENECA-2019SE21582

PATIENT
  Age: 28146 Day
  Sex: Female

DRUGS (18)
  1. VITAMIN B12 [Concomitant]
     Active Substance: CYANOCOBALAMIN
  2. ZOPLICONE [Concomitant]
     Active Substance: ZOPICLONE
  3. TECTA [Concomitant]
     Active Substance: PANTOPRAZOLE MAGNESIUM
  4. INSULIN [Concomitant]
     Active Substance: INSULIN NOS
  5. CALCIUM [Concomitant]
     Active Substance: CALCIUM
  6. ROSUVASTATIN. [Concomitant]
     Active Substance: ROSUVASTATIN
  7. DILTIAZEM. [Concomitant]
     Active Substance: DILTIAZEM
  8. MAGNESIUM [Concomitant]
     Active Substance: MAGNESIUM
  9. HCTZ [Concomitant]
     Active Substance: HYDROCHLOROTHIAZIDE
  10. ALENDRONATE [Concomitant]
     Active Substance: ALENDRONATE SODIUM
  11. XARELTO [Concomitant]
     Active Substance: RIVAROXABAN
  12. SPIRONOLACTONE. [Concomitant]
     Active Substance: SPIRONOLACTONE
  13. FASENRA [Suspect]
     Active Substance: BENRALIZUMAB
     Indication: ASTHMA
     Dosage: 30.0MG UNKNOWN
     Route: 058
     Dates: start: 20181207
  14. METFORMIN [Concomitant]
     Active Substance: METFORMIN HYDROCHLORIDE
  15. NABILONE [Concomitant]
     Active Substance: NABILONE
  16. DULOXETINE. [Concomitant]
     Active Substance: DULOXETINE
  17. GLICLAZIDE [Concomitant]
     Active Substance: GLICLAZIDE
  18. PREDNISONE. [Concomitant]
     Active Substance: PREDNISONE

REACTIONS (15)
  - Gastric ulcer [Unknown]
  - Syncope [Recovering/Resolving]
  - Hiatus hernia [Unknown]
  - Productive cough [Not Recovered/Not Resolved]
  - Dyspnoea exertional [Not Recovered/Not Resolved]
  - Haemorrhoids [Unknown]
  - Cough [Not Recovered/Not Resolved]
  - Gastrointestinal angiodysplasia [Unknown]
  - Loss of consciousness [Recovering/Resolving]
  - Dizziness [Recovering/Resolving]
  - Sleep disorder due to general medical condition, insomnia type [Unknown]
  - Anaemia [Recovering/Resolving]
  - Diverticulum [Unknown]
  - Renal impairment [Unknown]
  - Asthenia [Unknown]

NARRATIVE: CASE EVENT DATE: 20190104
